FAERS Safety Report 10270743 (Version 2)
Quarter: 2015Q1

REPORT INFORMATION
  Report Type: Spontaneous
  Country: US (occurrence: US)
  Receive Date: 20140701
  Receipt Date: 20150112
  Transmission Date: 20150720
  Serious: Yes (Other)
  Sender: FDA-Public Use
  Company Number: US-PFIZER INC-2014174784

PATIENT
  Age: 62 Year
  Sex: Female
  Weight: 54.42 kg

DRUGS (12)
  1. SYMBICORT [Concomitant]
     Active Substance: BUDESONIDE\FORMOTEROL FUMARATE DIHYDRATE
     Indication: CHRONIC OBSTRUCTIVE PULMONARY DISEASE
     Dosage: UNK, DAILY
  2. LYRICA [Suspect]
     Active Substance: PREGABALIN
     Indication: FIBROMYALGIA
     Dosage: 200 MG, 2X/DAY
     Dates: start: 2004, end: 201404
  3. NEXIUM [Concomitant]
     Active Substance: ESOMEPRAZOLE MAGNESIUM
     Indication: GASTROOESOPHAGEAL REFLUX DISEASE
     Dosage: 40 MG, 1X/DAY
  4. OXYBUTIN [Concomitant]
     Active Substance: OXYBUTYNIN
     Indication: HYPERTONIC BLADDER
     Dosage: 5 MG, 1X/DAY
  5. LISINOPRIL. [Concomitant]
     Active Substance: LISINOPRIL
     Indication: HYPERTENSION
     Dosage: 10 MG, UNK
  6. LORAZEPAM. [Concomitant]
     Active Substance: LORAZEPAM
     Indication: ANXIETY
     Dosage: 1 MG, 3X/DAY
  7. PROAIR HFA [Concomitant]
     Active Substance: ALBUTEROL SULFATE
     Indication: CHRONIC OBSTRUCTIVE PULMONARY DISEASE
     Dosage: UNK, DAILY
  8. LYRICA [Suspect]
     Active Substance: PREGABALIN
     Indication: NEUROPATHY PERIPHERAL
     Dosage: 200 MG, 3X/DAY
  9. RELAFEN [Concomitant]
     Active Substance: NABUMETONE
     Indication: OSTEOARTHRITIS
     Dosage: 500 MG, 3X/DAY
  10. RELAFEN [Concomitant]
     Active Substance: NABUMETONE
     Indication: ARTHRITIS
     Dosage: 500 MG, 3X/DAY
  11. DOXIFEN [Concomitant]
     Indication: INSOMNIA
     Dosage: 50 MG AT BEDTIME, AS NEEDED
  12. ASPIRIN ^BAYER^ [Concomitant]
     Active Substance: ASPIRIN
     Indication: MITRAL VALVE PROLAPSE
     Dosage: UNK, DAILY

REACTIONS (5)
  - Pain [Not Recovered/Not Resolved]
  - Influenza [Not Recovered/Not Resolved]
  - Weight decreased [Unknown]
  - Feeling abnormal [Not Recovered/Not Resolved]
  - Gait disturbance [Not Recovered/Not Resolved]

NARRATIVE: CASE EVENT DATE: 201404
